FAERS Safety Report 8857807 (Version 1)
Quarter: 2012Q4

REPORT INFORMATION
  Report Type: 
  Country: US (occurrence: US)
  Receive Date: 20121024
  Receipt Date: 20121024
  Transmission Date: 20130627
  Serious: No
  Sender: FDA-Public Use
  Company Number: US-AMGEN-USASP2011062151

PATIENT
  Age: 46 Year
  Sex: Female

DRUGS (7)
  1. ENBREL [Suspect]
     Indication: PRODUCT USED FOR UNKNOWN INDICATION
     Dosage: 50 mg, qwk
     Route: 058
  2. METHOTREXATE [Concomitant]
     Dosage: 2.5 mg, UNK
  3. FOLIC ACID [Concomitant]
     Dosage: 1 mg, UNK
  4. WELLBUTRIN [Concomitant]
     Dosage: 100 mg, UNK
  5. GLUCOSAMINE, CHONDROITIN + MSM [Concomitant]
  6. MULTIVITAMIN                       /00097801/ [Concomitant]
  7. CALCIUM +D                         /00188401/ [Concomitant]

REACTIONS (1)
  - Injection site erythema [Unknown]
